FAERS Safety Report 14777743 (Version 2)
Quarter: 2018Q2

REPORT INFORMATION
  Report Type: Report from Study
  Country: US (occurrence: US)
  Receive Date: 20180419
  Receipt Date: 20180425
  Transmission Date: 20180711
  Serious: Yes (Hospitalization)
  Sender: FDA-Public Use
  Company Number: US-HORIZON-BUP-0013-2018

PATIENT
  Age: 3 Month
  Sex: Male

DRUGS (5)
  1. CITRULLINE [Concomitant]
     Active Substance: CITRULLINE
  2. AMMONUL [Concomitant]
     Active Substance: SODIUM BENZOATE\SODIUM PHENYLACETATE
  3. ARGININE [Concomitant]
     Active Substance: ARGININE
  4. SODIUM BENZOATE [Concomitant]
     Active Substance: SODIUM BENZOATE
  5. BUPHENYL [Suspect]
     Active Substance: SODIUM PHENYLBUTYRATE
     Indication: ORNITHINE TRANSCARBAMOYLASE DEFICIENCY
     Dosage: 400 MG/KG TOLERATED; 700 MG/KG WERE NOT
     Dates: start: 20180211

REACTIONS (1)
  - Vomiting [Recovered/Resolved]

NARRATIVE: CASE EVENT DATE: 2018
